FAERS Safety Report 8113524-0 (Version None)
Quarter: 2012Q1

REPORT INFORMATION
  Report Type: 
  Country: None (occurrence: None)
  Receive Date: 20120203
  Receipt Date: 20120126
  Transmission Date: 20120608
  Serious: Yes (Hospitalization)
  Sender: FDA-Public Use
  Company Number: US-ELI_LILLY_AND_COMPANY-US201112001300

PATIENT
  Sex: Female

DRUGS (21)
  1. LIPITOR [Concomitant]
     Dosage: 10 MG, QD
  2. FLOVENT [Concomitant]
     Dosage: 1 DF, TID
     Route: 055
  3. LOVENOX [Concomitant]
     Dosage: 40 MG, QD
     Route: 058
  4. VERAPAMIL [Concomitant]
     Dosage: 240 MG, QD
  5. FLEXERIL [Concomitant]
     Dosage: 10 MG, TID
  6. SPIRIVA [Concomitant]
     Dosage: UNK, QD
     Route: 055
  7. HUMULIN 70/30 [Suspect]
     Indication: TYPE 1 DIABETES MELLITUS
     Dosage: 60 U, TID
     Dates: start: 20070101
  8. ATIVAN [Concomitant]
     Dosage: 2 MG, EVERY 8 HRS
  9. CATAPRES-TTS-1 [Concomitant]
     Dosage: 1 DF, WEEKLY (1/W)
     Route: 062
  10. PLAVIX [Concomitant]
     Dosage: 75 MG, QD
  11. PROTONIX [Concomitant]
     Dosage: 40 MG, QD
     Route: 042
  12. TYLENOL                                 /SCH/ [Concomitant]
     Dosage: UNK, PRN
  13. HYDROCODONE BITARTRATE [Concomitant]
     Dosage: UNK, PRN
  14. NITROGLYCERIN [Concomitant]
     Dosage: UNK, PRN
  15. LOSARTAN POTASSIUM [Concomitant]
     Dosage: 100 MG, QD
  16. COLACE [Concomitant]
     Dosage: 100 MG, QD
  17. ACCOLATE [Concomitant]
     Dosage: 20 MG, BID
  18. VERAPAMIL [Concomitant]
     Dosage: UNK
  19. IMDUR [Concomitant]
     Dosage: 60 MG, QD
  20. HYDRALAZINE HCL [Concomitant]
     Dosage: 20 MG, PRN
     Route: 042
  21. ALBUTEROL [Concomitant]
     Dosage: UNK, PRN

REACTIONS (10)
  - CORONARY ARTERY DISEASE [None]
  - TREMOR [None]
  - BLOOD PRESSURE INCREASED [None]
  - REACTION TO DRUG EXCIPIENTS [None]
  - PRODUCT TAMPERING [None]
  - CARDIAC MURMUR [None]
  - CHRONIC OBSTRUCTIVE PULMONARY DISEASE [None]
  - FEELING ABNORMAL [None]
  - BLOOD GLUCOSE INCREASED [None]
  - FEELING HOT [None]
